FAERS Safety Report 9280250 (Version 2)
Quarter: 2013Q2

REPORT INFORMATION
  Report Type: Spontaneous
  Country: DE (occurrence: DE)
  Receive Date: 20130509
  Receipt Date: 20130604
  Transmission Date: 20140414
  Serious: Yes (Hospitalization)
  Sender: FDA-Public Use
  Company Number: DE-JNJFOC-20130414669

PATIENT
  Age: 38 Year
  Sex: Male
  Weight: 80 kg

DRUGS (6)
  1. REMICADE [Suspect]
     Indication: CROHN^S DISEASE
     Dosage: TOATL NUMBER OF INFUSION RECEIVED: 2
     Route: 042
     Dates: start: 20130207, end: 20130403
  2. PREDNISOLONE [Concomitant]
     Indication: CROHN^S DISEASE
     Dosage: CONTINUED WITH THE DOSE REDUCTION
     Route: 065
  3. BISOPROLOL [Concomitant]
     Indication: HYPERTENSION
     Route: 065
  4. KATADOLON [Concomitant]
     Indication: BACK PAIN
     Route: 065
  5. VITAMIN D [Concomitant]
     Indication: OSTEOPOROSIS
     Route: 065
  6. HUMIRA [Concomitant]
     Route: 065

REACTIONS (5)
  - Sepsis [Unknown]
  - Pneumonia [Recovered/Resolved]
  - Renal failure acute [Recovered/Resolved]
  - Immunodeficiency [Unknown]
  - Abdominal pain [Recovered/Resolved]
